FAERS Safety Report 17228927 (Version 1)
Quarter: 2020Q1

REPORT INFORMATION
  Report Type: Spontaneous
  Country: US (occurrence: US)
  Receive Date: 20200103
  Receipt Date: 20200103
  Transmission Date: 20200409
  Serious: No
  Sender: FDA-Public Use
  Company Number: US-BAYER-2019-237652

PATIENT
  Age: 24 Year
  Sex: Female

DRUGS (3)
  1. MIRENA [Suspect]
     Active Substance: LEVONORGESTREL
     Indication: CONTRACEPTION
  2. IODINE. [Concomitant]
     Active Substance: IODINE
     Dosage: UNK
     Dates: start: 20191223
  3. MIRENA [Suspect]
     Active Substance: LEVONORGESTREL
     Indication: CONTRACEPTION
     Dosage: 20 MCG/24HR, CONT
     Route: 015
     Dates: start: 20191223, end: 20191223

REACTIONS (4)
  - Post procedural discomfort [None]
  - Complication of device insertion [None]
  - Device use issue [None]
  - Procedural pain [None]

NARRATIVE: CASE EVENT DATE: 20191223
